FAERS Safety Report 13158495 (Version 2)
Quarter: 2017Q1

REPORT INFORMATION
  Report Type: Spontaneous
  Country: JP (occurrence: JP)
  Receive Date: 20170127
  Receipt Date: 20170206
  Transmission Date: 20170428
  Serious: Yes (Other)
  Sender: FDA-Public Use
  Company Number: JP-ASTRAZENECA-2017SE09387

PATIENT
  Age: 67 Year
  Sex: Female

DRUGS (2)
  1. VANCOMYCIN HYDROCHLORIDE. [Suspect]
     Active Substance: VANCOMYCIN HYDROCHLORIDE
     Indication: PNEUMONIA STAPHYLOCOCCAL
     Route: 065
  2. MEROPEN [Suspect]
     Active Substance: MEROPENEM
     Indication: PNEUMONIA STAPHYLOCOCCAL
     Route: 041

REACTIONS (1)
  - Acute kidney injury [Recovering/Resolving]
